FAERS Safety Report 25250931 (Version 2)
Quarter: 2025Q2

REPORT INFORMATION
  Report Type: Spontaneous
  Country: US (occurrence: US)
  Receive Date: 20250429
  Receipt Date: 20250514
  Transmission Date: 20250716
  Serious: No
  Sender: VERTEX
  Company Number: US-VERTEX PHARMACEUTICALS-2025-006680

PATIENT
  Age: 27 Year
  Sex: Female

DRUGS (19)
  1. TRIKAFTA [Suspect]
     Active Substance: ELEXACAFTOR\IVACAFTOR\TEZACAFTOR
     Indication: Cystic fibrosis
     Route: 048
  2. AZTREONAM LYSINE [Suspect]
     Active Substance: AZTREONAM LYSINE
     Indication: Cystic fibrosis
     Dosage: 1 VIAL; 28 DAYS ON AND OFF
     Dates: start: 20241010
  3. PULMOZYME [Suspect]
     Active Substance: DORNASE ALFA
     Indication: Product used for unknown indication
     Route: 065
  4. ZENPEP [Concomitant]
     Active Substance: PANCRELIPASE AMYLASE\PANCRELIPASE LIPASE\PANCRELIPASE PROTEASE
  5. Dexcon [Concomitant]
  6. DOXYCYCLINE [Concomitant]
     Active Substance: DOXYCYCLINE
  7. ESCITALOPRAM [Concomitant]
     Active Substance: ESCITALOPRAM OXALATE
  8. LANTUS [Concomitant]
     Active Substance: INSULIN GLARGINE
  9. MUPIROCIN [Concomitant]
     Active Substance: MUPIROCIN
  10. NAPROXEN [Concomitant]
     Active Substance: NAPROXEN
  11. PROPRANOLOL HYDROCHLORIDE [Concomitant]
     Active Substance: PROPRANOLOL HYDROCHLORIDE
  12. TRAZODONE [Concomitant]
     Active Substance: TRAZODONE HYDROCHLORIDE
  13. URSODIOL [Concomitant]
     Active Substance: URSODIOL
  14. CHLORHEXIDINE GLUCONATE [Concomitant]
     Active Substance: CHLORHEXIDINE GLUCONATE
  15. HUMALOG [Concomitant]
     Active Substance: INSULIN LISPRO
  16. LURASIDONE [Concomitant]
     Active Substance: LURASIDONE
  17. PRAZOSIN [Concomitant]
     Active Substance: PRAZOSIN
  18. REXULTI [Concomitant]
     Active Substance: BREXPIPRAZOLE
  19. XHANCE [Concomitant]
     Active Substance: FLUTICASONE PROPIONATE

REACTIONS (6)
  - Fatigue [Not Recovered/Not Resolved]
  - Increased appetite [Not Recovered/Not Resolved]
  - Sleep disorder [Not Recovered/Not Resolved]
  - Loss of personal independence in daily activities [Not Recovered/Not Resolved]
  - Disturbance in social behaviour [Not Recovered/Not Resolved]
  - Abdominal pain [Unknown]
